FAERS Safety Report 9065264 (Version 1)
Quarter: 2013Q1

REPORT INFORMATION
  Report Type: Report from Study
  Country: US (occurrence: US)
  Receive Date: 20130130
  Receipt Date: 20130130
  Transmission Date: 20140127
  Serious: No
  Sender: FDA-Public Use
  Company Number: US-ABBOTT-12P-163-0968747-00

PATIENT
  Age: 52 Year
  Sex: Female

DRUGS (12)
  1. HUMIRA 40 MG/ 0.8 ML PRE-FILLED SYRINGE [Suspect]
     Indication: RHEUMATOID ARTHRITIS
     Dates: start: 201206
  2. METHOTREXATE [Concomitant]
     Indication: PRODUCT USED FOR UNKNOWN INDICATION
     Dosage: EVERY SUNDAY
  3. FOLIC ACID [Concomitant]
     Indication: PRODUCT USED FOR UNKNOWN INDICATION
  4. MOBIC [Concomitant]
     Indication: PRODUCT USED FOR UNKNOWN INDICATION
     Dosage: 15MG DAILY
  5. SOMA WITH APA AND CODEINE [Concomitant]
     Indication: PAIN
     Dosage: 200/325/16 1-2 TABLETS EVERY 6 HOURS AS NEEDED
  6. NEURONTIN [Concomitant]
     Indication: NERVE INJURY
  7. SIMVASTATIN [Concomitant]
     Indication: BLOOD CHOLESTEROL
     Dosage: 40MG DAILY
  8. ESTRADIOL [Concomitant]
     Indication: PRODUCT USED FOR UNKNOWN INDICATION
     Dosage: 2MG DAILY
  9. BENAZEPRIL W/HYDROCHLOROTHIAZIDE [Concomitant]
     Indication: BLOOD PRESSURE
     Dosage: 20/25MG DAILY
  10. AMBIEN [Concomitant]
     Indication: PRODUCT USED FOR UNKNOWN INDICATION
  11. PRILOSEC [Concomitant]
     Indication: ABDOMINAL PAIN
  12. STORE BRAND ZYRTEC-CETIRIZINE [Concomitant]
     Indication: HYPERSENSITIVITY

REACTIONS (1)
  - Contusion [Not Recovered/Not Resolved]
